FAERS Safety Report 16994383 (Version 1)
Quarter: 2019Q4

REPORT INFORMATION
  Report Type: Spontaneous
  Country: NO (occurrence: NO)
  Receive Date: 20191105
  Receipt Date: 20191105
  Transmission Date: 20200122
  Serious: Yes (Other)
  Sender: FDA-Public Use
  Company Number: NO-ROCHE-2445940

PATIENT
  Age: 34 Year
  Sex: Male

DRUGS (14)
  1. DEXAMETHASONE. [Concomitant]
     Active Substance: DEXAMETHASONE
     Dosage: PER DAY
     Route: 065
  2. LEVOFLOXACIN. [Concomitant]
     Active Substance: LEVOFLOXACIN
     Dosage: PER DAY
     Route: 065
  3. FLUCONAZOLE. [Concomitant]
     Active Substance: FLUCONAZOLE
     Dosage: PER DAY
     Route: 065
  4. MORPHINE [Concomitant]
     Active Substance: MORPHINE
  5. OCRELIZUMAB. [Suspect]
     Active Substance: OCRELIZUMAB
     Indication: PRODUCT USED FOR UNKNOWN INDICATION
     Route: 065
     Dates: end: 20180209
  6. ONDANSETRON [Concomitant]
     Active Substance: ONDANSETRON
     Dosage: PER DAY
     Route: 065
  7. OMEPRAZOLE. [Concomitant]
     Active Substance: OMEPRAZOLE
     Indication: GASTROINTESTINAL DISORDER PROPHYLAXIS
     Dosage: PER DAY
     Route: 065
  8. APREPITANT. [Concomitant]
     Active Substance: APREPITANT
     Indication: PROPHYLAXIS
     Route: 065
  9. COTRIMOXAZOLE [Concomitant]
     Active Substance: SULFAMETHOXAZOLE\TRIMETHOPRIM
     Dosage: 960 T/D
     Route: 065
  10. MABTHERA [Suspect]
     Active Substance: RITUXIMAB
     Indication: PRODUCT USED FOR UNKNOWN INDICATION
     Route: 065
  11. ENDOXAN [CYCLOPHOSPHAMIDE] [Suspect]
     Active Substance: CYCLOPHOSPHAMIDE
     Indication: PRODUCT USED FOR UNKNOWN INDICATION
     Route: 065
  12. MESNA. [Concomitant]
     Active Substance: MESNA
     Dosage: PER DAY
     Route: 065
  13. ACYCLOVIR [ACICLOVIR] [Concomitant]
     Active Substance: ACYCLOVIR
     Dosage: PER DAY
     Route: 065
  14. MEROPENEM. [Concomitant]
     Active Substance: MEROPENEM
     Dosage: 6.0 G/D
     Route: 065

REACTIONS (4)
  - Leukopenia [Unknown]
  - Lymphopenia [Unknown]
  - Mucosal inflammation [Unknown]
  - Thrombocytopenia [Unknown]
